FAERS Safety Report 4567809-5 (Version None)
Quarter: 2005Q1

REPORT INFORMATION
  Report Type: 
  Country: None (occurrence: None)
  Receive Date: 20050128
  Receipt Date: 20050114
  Transmission Date: 20050727
  Serious: Yes (Hospitalization)
  Sender: FDA-Public Use
  Company Number: 2005BI001134

PATIENT
  Age: 40 Year
  Sex: Female
  Weight: 128.8216 kg

DRUGS (3)
  1. AVONEX [Suspect]
     Indication: MULTIPLE SCLEROSIS
     Dosage: 30 UG; QW; IM
     Route: 030
     Dates: start: 19980101, end: 20040501
  2. PREDNISONE [Concomitant]
  3. PHENERGAN [Concomitant]

REACTIONS (12)
  - ANAEMIA [None]
  - CRYOGLOBULINAEMIA [None]
  - ENDOMETRIOSIS [None]
  - GASTROOESOPHAGEAL REFLUX DISEASE [None]
  - HAEMORRHAGE [None]
  - INJECTION SITE PAIN [None]
  - INSOMNIA [None]
  - MENSTRUATION IRREGULAR [None]
  - MIGRAINE [None]
  - MULTIPLE SCLEROSIS [None]
  - OSTEOARTHRITIS [None]
  - URINARY TRACT INFECTION [None]
